FAERS Safety Report 10155351 (Version 2)
Quarter: 2014Q2

REPORT INFORMATION
  Report Type: Spontaneous
  Country: IT (occurrence: IT)
  Receive Date: 20140506
  Receipt Date: 20140613
  Transmission Date: 20141212
  Serious: Yes (Hospitalization, Other)
  Sender: FDA-Public Use
  Company Number: IT-PFIZER INC-2014122245

PATIENT
  Age: 69 Year
  Sex: Female

DRUGS (3)
  1. MIRTAZAPINE [Suspect]
     Dosage: UNK
     Route: 048
     Dates: start: 20130918, end: 20130918
  2. VENLAFAXINE HCL [Suspect]
     Dosage: UNK
     Route: 048
     Dates: start: 20130918, end: 20130918
  3. DELORAZEPAM [Suspect]
     Dosage: UNK
     Route: 048
     Dates: start: 20130918, end: 20130918

REACTIONS (6)
  - Drug abuse [Recovering/Resolving]
  - Drug abuse [Recovering/Resolving]
  - Drug abuse [Recovering/Resolving]
  - Suicide attempt [Unknown]
  - Agitation [Recovering/Resolving]
  - Musculoskeletal pain [Recovering/Resolving]
